FAERS Safety Report 17007561 (Version 1)
Quarter: 2019Q4

REPORT INFORMATION
  Report Type: Spontaneous
  Country: US (occurrence: US)
  Receive Date: 20191108
  Receipt Date: 20191108
  Transmission Date: 20200122
  Serious: No
  Sender: FDA-Public Use
  Company Number: US-DRREDDYS-USA/USA/19/0115615

PATIENT
  Age: 74 Year
  Sex: Female

DRUGS (2)
  1. RANITIDINE CAPSULES 150 MG [Concomitant]
     Active Substance: RANITIDINE
     Indication: GASTROOESOPHAGEAL REFLUX DISEASE
     Dosage: IN THE EVENING
     Route: 048
  2. OMEPRAZOLE DELAYED RELEASE CAPSULES 40 MG [Suspect]
     Active Substance: OMEPRAZOLE
     Indication: GASTROOESOPHAGEAL REFLUX DISEASE
     Dosage: IN THE MORNING AND EVENING
     Route: 048

REACTIONS (2)
  - Product use issue [Unknown]
  - Malaise [Recovered/Resolved]
